FAERS Safety Report 10237199 (Version 1)
Quarter: 2014Q2

REPORT INFORMATION
  Report Type: Spontaneous
  Country: JP (occurrence: JP)
  Receive Date: 20140613
  Receipt Date: 20140613
  Transmission Date: 20141212
  Serious: Yes (Hospitalization)
  Sender: FDA-Public Use
  Company Number: JP-ALLERGAN-1413000US

PATIENT
  Age: 68 Year
  Sex: Female

DRUGS (2)
  1. BOTOX [Suspect]
     Indication: PRODUCT USED FOR UNKNOWN INDICATION
     Dosage: UNK, SINGLE
     Route: 030
  2. WARFARIN [Concomitant]

REACTIONS (2)
  - Muscle haemorrhage [Unknown]
  - Haemorrhage subcutaneous [Unknown]
